FAERS Safety Report 14939282 (Version 1)
Quarter: 2018Q2

REPORT INFORMATION
  Report Type: Spontaneous
  Country: US (occurrence: US)
  Receive Date: 20180525
  Receipt Date: 20180525
  Transmission Date: 20180711
  Serious: Yes (Death, Life-Threatening, Hospitalization)
  Sender: FDA-Public Use
  Company Number: US-MYLANLABS-2018M1034449

PATIENT
  Age: 53 Year
  Sex: Female

DRUGS (4)
  1. MAGNESIUM [Suspect]
     Active Substance: MAGNESIUM
     Indication: CONSTIPATION
     Dosage: REGULAR DOSE NOT STATED; RECEIVED 800MG DURING EARLY PART OF HOSPITAL STAY
     Route: 048
  2. LITHIUM. [Concomitant]
     Active Substance: LITHIUM
     Indication: CONSTIPATION
  3. LACTULOSE. [Concomitant]
     Active Substance: LACTULOSE
     Indication: CONSTIPATION
     Route: 065
  4. SODIUM PHOSPHATE [Concomitant]
     Active Substance: SODIUM PHOSPHATE
     Indication: CONSTIPATION
     Dosage: FORMULATION: ENEMA
     Route: 065

REACTIONS (10)
  - Mental status changes [Unknown]
  - Atrioventricular block first degree [Unknown]
  - Respiratory distress [Fatal]
  - Shock [Fatal]
  - Vomiting [Unknown]
  - Acute kidney injury [Fatal]
  - Hypermagnesaemia [Fatal]
  - Hypoxic-ischaemic encephalopathy [Fatal]
  - Confusional state [Unknown]
  - Lethargy [Unknown]
